FAERS Safety Report 13281834 (Version 1)
Quarter: 2017Q1

REPORT INFORMATION
  Report Type: Spontaneous
  Country: US (occurrence: US)
  Receive Date: 20170228
  Receipt Date: 20170228
  Transmission Date: 20170428
  Serious: Yes (Hospitalization)
  Sender: FDA-Public Use
  Company Number: None

PATIENT
  Age: 67 Year
  Sex: Female
  Weight: 57.7 kg

DRUGS (5)
  1. RIBOCICLIB [Suspect]
     Active Substance: RIBOCICLIB
     Indication: OVARIAN CANCER
     Route: 048
     Dates: start: 20170126, end: 20170220
  2. LOVENOX [Concomitant]
     Active Substance: ENOXAPARIN SODIUM
  3. SYNTHROID [Concomitant]
     Active Substance: LEVOTHYROXINE SODIUM
  4. PROTONIX [Concomitant]
     Active Substance: PANTOPRAZOLE SODIUM
  5. LETROZOLE. [Suspect]
     Active Substance: LETROZOLE
     Indication: OVARIAN CANCER
     Route: 048
     Dates: start: 20170126, end: 20170220

REACTIONS (4)
  - Nausea [None]
  - Vomiting [None]
  - Constipation [None]
  - Pain [None]

NARRATIVE: CASE EVENT DATE: 20170224
